FAERS Safety Report 19180393 (Version 1)
Quarter: 2021Q2

REPORT INFORMATION
  Report Type: Spontaneous
  Country: ES (occurrence: ES)
  Receive Date: 20210426
  Receipt Date: 20210426
  Transmission Date: 20210717
  Serious: Yes (Hospitalization)
  Sender: FDA-Public Use
  Company Number: NVSC2021ES086834

PATIENT
  Age: 16 Year
  Sex: Female

DRUGS (11)
  1. ARIPIPRAZOLE. [Suspect]
     Active Substance: ARIPIPRAZOLE
     Indication: ANOREXIA NERVOSA
     Dosage: 5 MG, QD (EVERY 24 H)
     Route: 048
  2. BROMAZEPAM [Suspect]
     Active Substance: BROMAZEPAM
     Indication: OBSESSIVE-COMPULSIVE DISORDER
  3. ABILIFY MAINTENA [Suspect]
     Active Substance: ARIPIPRAZOLE
     Indication: OBSESSIVE-COMPULSIVE DISORDER
     Dosage: UNK
     Route: 065
  4. ARIPIPRAZOLE. [Suspect]
     Active Substance: ARIPIPRAZOLE
     Indication: OBSESSIVE-COMPULSIVE DISORDER
     Dosage: 15 MG, QD (EVERY 24 H)
     Route: 048
  5. SERTRALINE [Suspect]
     Active Substance: SERTRALINE HYDROCHLORIDE
     Indication: OBSESSIVE-COMPULSIVE DISORDER
  6. BROMAZEPAM [Suspect]
     Active Substance: BROMAZEPAM
     Indication: ANOREXIA NERVOSA
     Dosage: 1.5 MG, QD (EVERY 24 H)
     Route: 065
  7. QUETIAPINE. [Suspect]
     Active Substance: QUETIAPINE
     Indication: ANOREXIA NERVOSA
     Dosage: 200 MG, QD (EVERY 24 H)
     Route: 065
  8. ABILIFY MAINTENA [Suspect]
     Active Substance: ARIPIPRAZOLE
     Indication: ANOREXIA NERVOSA
     Dosage: 400 MG, QMO
     Route: 065
  9. QUETIAPINE. [Suspect]
     Active Substance: QUETIAPINE
     Indication: OBSESSIVE-COMPULSIVE DISORDER
  10. SERTRALINE [Suspect]
     Active Substance: SERTRALINE HYDROCHLORIDE
     Indication: ANOREXIA NERVOSA
     Dosage: 200 MG, QD (EVERY 24 H)
     Route: 065
  11. ARIPIPRAZOLE. [Suspect]
     Active Substance: ARIPIPRAZOLE
     Dosage: 10 MG, QD (EVERY 24 H)
     Route: 048

REACTIONS (13)
  - Product use in unapproved indication [Unknown]
  - Depersonalisation/derealisation disorder [Recovered/Resolved]
  - Obsessive-compulsive disorder [Recovered/Resolved]
  - Self-injurious ideation [Recovered/Resolved]
  - Violence-related symptom [Recovered/Resolved]
  - Psychomotor hyperactivity [Recovered/Resolved]
  - Abulia [Recovered/Resolved]
  - Asthenia [Recovered/Resolved]
  - Irritability [Recovered/Resolved]
  - Intentional self-injury [Recovered/Resolved]
  - Fear of weight gain [Recovered/Resolved]
  - Apathy [Recovered/Resolved]
  - Anxiety [Recovered/Resolved]
